FAERS Safety Report 4529407-9 (Version None)
Quarter: 2004Q4

REPORT INFORMATION
  Report Type: 
  Country: None (occurrence: None)
  Receive Date: 20041216
  Receipt Date: 20041213
  Transmission Date: 20050328
  Serious: Yes (Other)
  Sender: FDA-Public Use
  Company Number: 003731

PATIENT
  Sex: Female

DRUGS (4)
  1. MEDROXYPROGESTERONE ACETATE [Suspect]
     Dates: start: 19800101, end: 19990105
  2. PROVERA [Suspect]
     Dates: start: 19800101, end: 19990105
  3. PREMPRO [Suspect]
     Dates: start: 19990106, end: 20000612
  4. PREMARIN [Suspect]
     Dates: start: 20000613

REACTIONS (1)
  - BREAST CANCER FEMALE [None]
